FAERS Safety Report 18898672 (Version 1)
Quarter: 2021Q1

REPORT INFORMATION
  Report Type: Spontaneous
  Country: US (occurrence: US)
  Receive Date: 20210216
  Receipt Date: 20210216
  Transmission Date: 20210420
  Serious: No
  Sender: FDA-Public Use
  Company Number: US-TORRENT-00010716

PATIENT
  Sex: Female

DRUGS (2)
  1. FELODIPINE EXTENDED?RELEASE TABLETS USP [Suspect]
     Active Substance: FELODIPINE
     Indication: BLOOD PRESSURE MEASUREMENT
     Dosage: TWICE DAILY
     Dates: start: 20210201, end: 20210203
  2. INDERAL [Concomitant]
     Active Substance: PROPRANOLOL HYDROCHLORIDE
     Indication: BLOOD PRESSURE MEASUREMENT
     Dosage: UNKNOWN

REACTIONS (3)
  - Hypoaesthesia oral [Unknown]
  - Burning sensation [Unknown]
  - Product odour abnormal [Unknown]
